FAERS Safety Report 4819909-X (Version None)
Quarter: 2005Q4

REPORT INFORMATION
  Report Type: 
  Country: None (occurrence: None)
  Receive Date: 20051103
  Receipt Date: 20050708
  Transmission Date: 20060501
  Serious: Yes (Other)
  Sender: FDA-Public Use
  Company Number: PT-MERCK-0507PRT00003

PATIENT
  Age: 12 Year
  Sex: Male

DRUGS (9)
  1. BUDESONIDE AND FORMOTEROL FUMARATE [Concomitant]
     Indication: ASTHMA
     Route: 055
     Dates: start: 20040101, end: 20050701
  2. FLUTICASONE PROPIONATE [Concomitant]
     Indication: ASTHMA
     Route: 055
     Dates: start: 20040101, end: 20050701
  3. TERBUTALINE SULFATE [Concomitant]
     Route: 055
     Dates: start: 20040101, end: 20050701
  4. ALBUTEROL SULFATE [Concomitant]
     Indication: ASTHMA
     Route: 065
     Dates: start: 20050701
  5. ACETAMINOPHEN [Concomitant]
     Indication: PAIN
     Route: 065
     Dates: start: 20050701
  6. SINGULAIR [Suspect]
     Indication: ASTHMA
     Route: 048
     Dates: start: 20040601, end: 20050601
  7. SINGULAIR [Suspect]
     Route: 048
     Dates: start: 20050930
  8. SINGULAIR [Suspect]
     Indication: RHINITIS
     Route: 048
     Dates: start: 20040601, end: 20050601
  9. SINGULAIR [Suspect]
     Route: 048
     Dates: start: 20050930

REACTIONS (3)
  - HAEMATOMA [None]
  - MASTOCYTOSIS [None]
  - PETECHIAE [None]
